FAERS Safety Report 7601414-9 (Version None)
Quarter: 2011Q2

REPORT INFORMATION
  Report Type: 
  Country: None (occurrence: None)
  Receive Date: 20110629
  Receipt Date: 20110217
  Transmission Date: 20111010
  Serious: Yes (Other)
  Sender: FDA-Public Use
  Company Number: WAES 1102USA02284

PATIENT
  Age: 51 Year
  Sex: Male

DRUGS (3)
  1. SIMVASTATIN [Concomitant]
  2. NEXIUM [Concomitant]
  3. HYZAAR [Suspect]
     Indication: HYPERTENSION
     Dosage: 100MG-25 MG/DAILY/PO
     Route: 048
     Dates: start: 20100801, end: 20100901

REACTIONS (1)
  - EPISTAXIS [None]
